FAERS Safety Report 25140614 (Version 1)
Quarter: 2025Q1

REPORT INFORMATION
  Report Type: Spontaneous
  Country: FI (occurrence: FI)
  Receive Date: 20250331
  Receipt Date: 20250331
  Transmission Date: 20250408
  Serious: Yes (Life-Threatening)
  Sender: GUERBET
  Company Number: None

PATIENT
  Age: 82 Year
  Sex: Male

DRUGS (1)
  1. DOTAREM [Suspect]
     Active Substance: GADOTERATE MEGLUMINE
     Indication: Magnetic resonance imaging
     Route: 042
     Dates: start: 20250228, end: 20250228

REACTIONS (6)
  - Loss of consciousness [Recovering/Resolving]
  - Respiration abnormal [Recovering/Resolving]
  - Stridor [Recovering/Resolving]
  - Pulse absent [Recovering/Resolving]
  - Unresponsive to stimuli [Recovering/Resolving]
  - Erythema [Recovering/Resolving]

NARRATIVE: CASE EVENT DATE: 20250228
